FAERS Safety Report 11840304 (Version 1)
Quarter: 2015Q4

REPORT INFORMATION
  Report Type: Spontaneous
  Country: US (occurrence: None)
  Receive Date: 20151215
  Receipt Date: 20151215
  Transmission Date: 20160305
  Serious: No
  Sender: FDA-Public Use
  Company Number: None

PATIENT
  Age: 6 Year
  Sex: Female

DRUGS (1)
  1. QVAR [Suspect]
     Active Substance: BECLOMETHASONE DIPROPIONATE
     Indication: ASTHMA
     Dosage: 2 PUFFS ONCE DAILY
     Route: 048
     Dates: start: 20110401, end: 20130228

REACTIONS (7)
  - Gastrooesophageal reflux disease [None]
  - Cough [None]
  - Depression [None]
  - Suicidal ideation [None]
  - Nasopharyngitis [None]
  - Oesophagitis [None]
  - Self esteem decreased [None]

NARRATIVE: CASE EVENT DATE: 20121216
